FAERS Safety Report 5291744-0 (Version None)
Quarter: 2007Q2

REPORT INFORMATION
  Report Type: 
  Country: None (occurrence: None)
  Receive Date: 20070410
  Receipt Date: 20070402
  Transmission Date: 20071010
  Serious: Yes (Hospitalization)
  Sender: FDA-Public Use
  Company Number: US-BRISTOL-MYERS SQUIBB COMPANY-13675152

PATIENT
  Age: 58 Year
  Sex: Female
  Weight: 74 kg

DRUGS (4)
  1. CETUXIMAB [Suspect]
     Indication: BREAST CANCER METASTATIC
     Route: 040
     Dates: start: 20070119, end: 20070119
  2. CARBOPLATIN [Suspect]
     Indication: BREAST CANCER METASTATIC
     Route: 040
     Dates: start: 20070119, end: 20070119
  3. PULMICORT [Concomitant]
     Route: 055
  4. PREDNISONE TAB [Concomitant]
     Indication: ASTHMA

REACTIONS (7)
  - ARTERIOSPASM CORONARY [None]
  - ASTHMA [None]
  - CARDIAC FAILURE [None]
  - CHRONIC OBSTRUCTIVE PULMONARY DISEASE [None]
  - DIASTOLIC DYSFUNCTION [None]
  - ELECTROCARDIOGRAM ST SEGMENT ELEVATION [None]
  - PNEUMONITIS [None]
